FAERS Safety Report 6855546-3 (Version None)
Quarter: 2010Q3

REPORT INFORMATION
  Report Type: 
  Country: None (occurrence: None)
  Receive Date: 20100719
  Receipt Date: 20100709
  Transmission Date: 20110219
  Serious: Yes (Hospitalization)
  Sender: FDA-Public Use
  Company Number: ES-JNJFOC-20100702037

PATIENT
  Sex: Female

DRUGS (1)
  1. RISPERDAL CONSTA [Suspect]
     Indication: PRODUCT USED FOR UNKNOWN INDICATION
     Route: 030

REACTIONS (5)
  - APATHY [None]
  - EXTRAPYRAMIDAL DISORDER [None]
  - MYOSITIS [None]
  - PSYCHOTIC DISORDER [None]
  - WAXY FLEXIBILITY [None]
